FAERS Safety Report 4716653-4 (Version None)
Quarter: 2005Q3

REPORT INFORMATION
  Report Type: 
  Country: None (occurrence: None)
  Receive Date: 20050718
  Receipt Date: 20050520
  Transmission Date: 20060218
  Serious: Yes (Death, Hospitalization)
  Sender: FDA-Public Use
  Company Number: DSA_26470_2005

PATIENT
  Age: 75 Year
  Sex: Female

DRUGS (14)
  1. DILTIAZEM HYDROCHLORIDE [Suspect]
     Indication: HYPERTENSION
     Dosage: DF UNK UNK
     Dates: end: 20050301
  2. ZOTON [Suspect]
     Indication: DUODENAL ULCER
     Dosage: DF UNK PO
     Route: 048
     Dates: start: 20020301
  3. ACETAMINOPHEN W/ CODEINE [Suspect]
     Indication: RHEUMATOID ARTHRITIS
     Dosage: DF UNK UNK
     Dates: start: 20020301
  4. PROPOFOL [Suspect]
     Indication: ANAESTHESIA
     Dosage: DF UNK IV
     Route: 042
     Dates: start: 20020301, end: 20020301
  5. MIDAZOLAM HCL [Suspect]
     Indication: ANAESTHESIA
     Dosage: DF UNK IV
     Route: 042
     Dates: start: 20020301, end: 20020301
  6. FENTANYL [Suspect]
     Indication: ANAESTHESIA
     Dosage: DF UNK IV
     Route: 042
     Dates: start: 20020301, end: 20020301
  7. PANCURONIOUM [Suspect]
     Indication: MUSCLE RELAXANT THERAPY
     Dosage: DF UNK UNK
     Dates: start: 20020301, end: 20020301
  8. ASPIRIN [Concomitant]
  9. ARAVA [Concomitant]
  10. LISINOPRIL [Concomitant]
  11. GLYCERYL TRINITRATE [Concomitant]
  12. ATORVASTATIN CALCIUM [Concomitant]
  13. QUININE SULFATE [Concomitant]
  14. BUDENOSIDE [Concomitant]

REACTIONS (14)
  - GASTRIC ULCER HAEMORRHAGE [None]
  - GASTROINTESTINAL HAEMORRHAGE [None]
  - GENERAL PHYSICAL HEALTH DETERIORATION [None]
  - HAEMATEMESIS [None]
  - HAEMODIALYSIS [None]
  - HEPATIC CONGESTION [None]
  - HEPATIC FAILURE [None]
  - HEPATIC INFARCTION [None]
  - HEPATOCELLULAR DAMAGE [None]
  - HEPATORENAL SYNDROME [None]
  - HYPOVOLAEMIA [None]
  - LABILE BLOOD PRESSURE [None]
  - POST PROCEDURAL HAEMORRHAGE [None]
  - RENAL FAILURE [None]
